FAERS Safety Report 10242701 (Version 1)
Quarter: 2014Q2

REPORT INFORMATION
  Report Type: Spontaneous
  Country: CA (occurrence: CA)
  Receive Date: 20140617
  Receipt Date: 20140617
  Transmission Date: 20141212
  Serious: Yes (Hospitalization, Other)
  Sender: FDA-Public Use
  Company Number: CA-PFIZER INC-2014161195

PATIENT
  Age: 71 Year
  Sex: Male

DRUGS (7)
  1. AZITHROMYCIN [Suspect]
     Dosage: 250 MG, UNK
     Route: 048
  2. AZITHROMYCIN [Suspect]
     Dosage: 250 MG, 2X/DAY
     Route: 048
  3. AVELOX [Suspect]
     Dosage: 1 DF, DAILY
     Route: 048
  4. AVELOX [Suspect]
     Dosage: 400 MG, DAILY
     Route: 048
  5. HUMIRA [Suspect]
     Dosage: 40 MG, EVERY 2 WEEKS
     Route: 058
  6. CORTISONE [Concomitant]
  7. COUMADIN [Concomitant]

REACTIONS (7)
  - Cough [Not Recovered/Not Resolved]
  - Fatigue [Not Recovered/Not Resolved]
  - Haemoptysis [Not Recovered/Not Resolved]
  - Malaise [Not Recovered/Not Resolved]
  - Pneumonia [Not Recovered/Not Resolved]
  - Pulmonary mass [Not Recovered/Not Resolved]
  - Pyrexia [Not Recovered/Not Resolved]
